FAERS Safety Report 14157009 (Version 1)
Quarter: 2017Q4

REPORT INFORMATION
  Report Type: Spontaneous
  Country: US (occurrence: US)
  Receive Date: 20171103
  Receipt Date: 20171103
  Transmission Date: 20180321
  Serious: Yes (Other)
  Sender: FDA-Public Use
  Company Number: None

PATIENT
  Age: 50 Year
  Sex: Female
  Weight: 68.85 kg

DRUGS (1)
  1. PREPARATION H SUPPOSITORY [Suspect]
     Active Substance: COCOA BUTTER\PHENYLEPHRINE HYDROCHLORIDE
     Indication: HAEMORRHOIDS
     Dosage: ?          OTHER STRENGTH:SUPPOSITORY;QUANTITY:1 SUPPOSITORY(IES);?
     Route: 054
     Dates: start: 20171101, end: 20171102

REACTIONS (3)
  - Abdominal pain [None]
  - Contraindication to medical treatment [None]
  - Gluten sensitivity [None]

NARRATIVE: CASE EVENT DATE: 20171102
